FAERS Safety Report 8412159-X (Version None)
Quarter: 2012Q2

REPORT INFORMATION
  Report Type: 
  Country: None (occurrence: None)
  Receive Date: 20120605
  Receipt Date: 20120507
  Transmission Date: 20120825
  Serious: No
  Sender: FDA-Public Use
  Company Number: US-AMGEN-USASP2012028702

PATIENT
  Age: 47 Year
  Sex: Male

DRUGS (1)
  1. ENBREL [Suspect]
     Indication: PSORIATIC ARTHROPATHY
     Dosage: 50 MG, QWK
     Dates: start: 20080101, end: 20080101

REACTIONS (6)
  - NAUSEA [None]
  - FATIGUE [None]
  - INJECTION SITE SWELLING [None]
  - HEADACHE [None]
  - DIZZINESS [None]
  - FURUNCLE [None]
